FAERS Safety Report 7397445-7 (Version None)
Quarter: 2011Q2

REPORT INFORMATION
  Report Type: 
  Country: None (occurrence: None)
  Receive Date: 20110406
  Receipt Date: 20110323
  Transmission Date: 20111010
  Serious: Yes (Other)
  Sender: FDA-Public Use
  Company Number: PHEH2007US15441

PATIENT
  Sex: Female

DRUGS (33)
  1. RADIATION THERAPY [Concomitant]
  2. PROCHLORPERAZINE [Concomitant]
     Dosage: 10MG TID
     Route: 048
  3. BEXTRA [Concomitant]
     Dosage: 20MG QD
     Route: 048
  4. NORVASC [Concomitant]
     Dosage: 5MG QD
     Route: 048
  5. ZESTRIL [Concomitant]
  6. AMOXICILLIN [Concomitant]
     Dosage: 500MG TID
     Route: 048
  7. LORAZEPAM [Concomitant]
     Dosage: 0.5MG QD HS
     Route: 048
  8. NEUPOGEN [Concomitant]
     Dosage: 480MCG
     Route: 030
  9. MORPHINE [Concomitant]
  10. ADVIL LIQUI-GELS [Concomitant]
  11. AVASTIN [Concomitant]
  12. TAMOXIFEN CITRATE [Concomitant]
  13. PERIOGARD [Concomitant]
     Dosage: 0.12% ORAL RINSE
     Route: 049
  14. TRAMADOL [Concomitant]
     Dosage: 37.5-325MG
     Route: 048
  15. LEVAQUIN [Concomitant]
     Dosage: 500MG QD
     Route: 048
  16. ZOLADEX [Concomitant]
  17. XELODA [Concomitant]
     Dosage: 1000MG BID
     Route: 048
  18. FEMARA [Concomitant]
     Dosage: 2.5MG
  19. PROMETHAZINE HCL AND CODEINE [Concomitant]
     Dosage: UNK
     Route: 048
  20. GEMZAR [Concomitant]
  21. ZOMETA [Suspect]
     Dosage: UNK
     Route: 042
  22. CHEMOTHERAPEUTICS NOS [Concomitant]
  23. SYNTHROID [Concomitant]
     Dosage: 137MG PO QD
     Route: 048
  24. AZITHROMYCIN [Concomitant]
     Dosage: 250MG
     Route: 048
  25. AUGMENTIN - SLOW RELEASE [Concomitant]
     Dosage: 2000MG BID
     Route: 048
  26. FENTANYL [Concomitant]
     Dosage: 25MCG PATCH
     Route: 062
  27. CELEBREX [Concomitant]
     Dosage: 200MG QD
     Route: 048
  28. CARDIZEM LA /OLD FORM/ [Concomitant]
     Dosage: 240MG QD
     Route: 048
  29. HYDROCODONE [Concomitant]
     Dosage: 5-500MG
     Route: 048
  30. CHLORHEXIDINE DENTAL ^ACO^ [Concomitant]
     Dosage: 0.12% RINSE
     Route: 049
  31. GABAPENTIN [Concomitant]
     Dosage: 100MG
     Route: 048
  32. CIPROFLOXACIN [Concomitant]
     Dosage: 500MG
     Route: 048
  33. ZOCOR [Concomitant]

REACTIONS (34)
  - ASCITES [None]
  - METASTASES TO BONE [None]
  - SPINAL DISORDER [None]
  - NEOPLASM MALIGNANT [None]
  - ANXIETY [None]
  - ANHEDONIA [None]
  - SPINAL COMPRESSION FRACTURE [None]
  - CERVICAL DYSPLASIA [None]
  - HYPOAESTHESIA ORAL [None]
  - PLEURAL EFFUSION [None]
  - OVARIAN CYST [None]
  - PAIN [None]
  - BONE DISORDER [None]
  - BRONCHITIS [None]
  - CHOLELITHIASIS [None]
  - PARAESTHESIA ORAL [None]
  - SPINAL CORD INJURY [None]
  - ANAEMIA [None]
  - PNEUMONIA [None]
  - HEPATIC STEATOSIS [None]
  - OVARIAN ENLARGEMENT [None]
  - NECK PAIN [None]
  - KYPHOSIS [None]
  - OSTEONECROSIS OF JAW [None]
  - INJURY [None]
  - IMPAIRED HEALING [None]
  - ROSACEA [None]
  - MUSCLE SPASMS [None]
  - HYPOAESTHESIA [None]
  - RESPIRATORY TRACT INFLAMMATION [None]
  - BASAL CELL CARCINOMA [None]
  - TOOTH IMPACTED [None]
  - METASTASES TO LIVER [None]
  - ARTHROPATHY [None]
